FAERS Safety Report 18643648 (Version 1)
Quarter: 2020Q4

REPORT INFORMATION
  Report Type: Spontaneous
  Country: US (occurrence: US)
  Receive Date: 20201221
  Receipt Date: 20201221
  Transmission Date: 20210114
  Serious: Yes (Other)
  Sender: FDA-Public Use
  Company Number: None

PATIENT
  Age: 52 Year
  Sex: Female
  Weight: 53.55 kg

DRUGS (2)
  1. VITAMIN D [Concomitant]
     Active Substance: VITAMIN D NOS
  2. TRILUMA [Suspect]
     Active Substance: HYDROQUINONE
     Indication: CHLOASMA
     Dosage: ?          QUANTITY:1 THIN APPLICATION;?
     Route: 061
     Dates: start: 20200921, end: 20201118

REACTIONS (3)
  - Condition aggravated [None]
  - Skin discolouration [None]
  - Drug ineffective [None]

NARRATIVE: CASE EVENT DATE: 20201108
